FAERS Safety Report 7416030-1 (Version None)
Quarter: 2011Q2

REPORT INFORMATION
  Report Type: 
  Country: None (occurrence: None)
  Receive Date: 20110414
  Receipt Date: 20110406
  Transmission Date: 20111010
  Serious: Yes (Other)
  Sender: FDA-Public Use
  Company Number: CHPA2011IT05005

PATIENT
  Sex: Female

DRUGS (1)
  1. IBUPROFEN [Suspect]
     Dosage: 2 MG 2 VIALS
     Route: 065
     Dates: start: 20110213

REACTIONS (1)
  - ASTHMA [None]
